FAERS Safety Report 9398837 (Version 2)
Quarter: 2013Q3

REPORT INFORMATION
  Report Type: Spontaneous
  Country: US (occurrence: US)
  Receive Date: 20130712
  Receipt Date: 20130731
  Transmission Date: 20140515
  Serious: Yes (Disabling, Other)
  Sender: FDA-Public Use
  Company Number: US-B.I. PHARMACEUTICALS,INC./RIDGEFIELD-2013-BI-20134BP

PATIENT
  Age: 76 Year
  Sex: Female
  Weight: 77.56 kg

DRUGS (24)
  1. SPIRIVA [Suspect]
     Indication: CHRONIC OBSTRUCTIVE PULMONARY DISEASE
     Dosage: 18 MCG
     Route: 055
     Dates: start: 20121015
  2. SPIRIVA [Suspect]
     Dosage: 90 ANZ
     Route: 055
     Dates: end: 20130517
  3. ADVAIR DISKUS 250MCG-50MCG [Concomitant]
     Indication: CHRONIC OBSTRUCTIVE PULMONARY DISEASE
     Dosage: STRENGTH: 250/50; DAILY DOSE: 500/100
     Route: 055
     Dates: start: 2012
  4. ADVAIR DISKUS 250MCG-50MCG [Concomitant]
     Dosage: 2 PUF
     Route: 055
     Dates: end: 20130621
  5. AMBIEN 5MG TABLET [Concomitant]
     Indication: INSOMNIA
     Route: 048
     Dates: start: 201211
  6. AMBIEN 5MG TABLET [Concomitant]
     Dosage: 30 ANZ
     Route: 048
  7. NEXIUM 40MG CAPSULE DELAYED RELEASE [Concomitant]
     Indication: GASTROOESOPHAGEAL REFLUX DISEASE
     Dosage: 40 MG
     Route: 048
  8. NEXIUM 40MG CAPSULE DELAYED RELEASE [Concomitant]
     Dosage: 90 ANZ
     Route: 048
  9. AMLODIPINE [Concomitant]
     Dosage: 10 MG
     Route: 048
  10. AMLODIPINE [Concomitant]
     Dosage: 90 ANZ
     Route: 048
  11. METOPROLOL SUCCINATE ER 50MG TABLET EXTENDED REALEASE 24HR [Concomitant]
     Dosage: 100 MG
     Route: 048
  12. METOPROLOL SUCCINATE ER 50MG TABLET EXTENDED REALEASE 24HR [Concomitant]
     Dosage: 90 ANZ
     Route: 048
  13. SIMVASTATIN [Concomitant]
     Dosage: 20 MG
     Route: 048
  14. CALCTRATE WITH D [Concomitant]
     Dosage: 2 ANZ
     Route: 048
  15. PERICOLACE [Concomitant]
     Dosage: FORMULATION: CAPLET; STRENGTH: 1 CAP; DAILY DOSE: 2 CAPS
     Route: 048
  16. XOPENEX 0.63MG/3ML NEB SOLUTION [Concomitant]
     Indication: CHRONIC OBSTRUCTIVE PULMONARY DISEASE
     Dosage: 0.6MG/3ML NEB SOLUTION,1 UNIT INHALE FOUR TIMES A DAY
     Dates: start: 20121115
  17. XOPENEX 0.63MG/3ML NEB SOLUTION [Concomitant]
     Indication: ASTHMA
  18. CALTRATE PLUS 600MG CALCIUM-400 UNIT TABLET [Concomitant]
     Dosage: 1 TABLET
     Route: 048
  19. ASPIRIN 81MG TABLET [Concomitant]
     Dosage: 81 MG
     Route: 048
  20. ASPIRIN 81MG TABLET [Concomitant]
     Dosage: 90 ANZ
     Route: 048
  21. LATANOPROST 0.005% EYE DROPS [Concomitant]
     Dosage: 1 ML
  22. ULTRAM 50MG TABLET [Concomitant]
     Dosage: 90 ANZ
  23. ULTRAM 50MG TABLET [Concomitant]
     Dosage: 90 ANZ
     Route: 048
  24. AMLODIPINE 10MG TABLET [Concomitant]
     Dosage: 90 ANZ

REACTIONS (1)
  - Non-small cell lung cancer [Not Recovered/Not Resolved]
